FAERS Safety Report 23953962 (Version 1)
Quarter: 2024Q2

REPORT INFORMATION
  Report Type: Spontaneous
  Country: US (occurrence: US)
  Receive Date: 20240609
  Receipt Date: 20240609
  Transmission Date: 20240716
  Serious: No
  Sender: FDA-Public Use
  Company Number: US-BRISTOL-MYERS SQUIBB COMPANY-2024-091816

PATIENT
  Age: 71 Year
  Sex: Female
  Weight: 56.69 kg

DRUGS (2)
  1. ELIQUIS [Suspect]
     Active Substance: APIXABAN
     Indication: Product used for unknown indication
  2. DUPIXENT [Suspect]
     Active Substance: DUPILUMAB
     Indication: Asthma
     Dosage: PRE-FILLED SYRINGE?STRENGTH: 300MG/2ML
     Route: 058

REACTIONS (2)
  - Bursitis [Unknown]
  - Rash [Unknown]
